FAERS Safety Report 5388888-1 (Version None)
Quarter: 2007Q3

REPORT INFORMATION
  Report Type: 
  Country: None (occurrence: None)
  Receive Date: 20070717
  Receipt Date: 20070622
  Transmission Date: 20080115
  Serious: Yes (Other)
  Sender: FDA-Public Use
  Company Number: JP-RB-007046-07

PATIENT
  Sex: Male

DRUGS (2)
  1. LEPETAN [Suspect]
     Dosage: TWICE A DAY AND DOSAGE UNKNOWN.
     Route: 054
     Dates: start: 19990212
  2. TRIAZOLAM [Concomitant]
     Route: 050
     Dates: start: 19990212

REACTIONS (1)
  - DEPENDENCE [None]
